APPROVED DRUG PRODUCT: CEFPROZIL
Active Ingredient: CEFPROZIL
Strength: 250MG/5ML
Dosage Form/Route: FOR SUSPENSION;ORAL
Application: A065202 | Product #002
Applicant: RANBAXY LABORATORIES LTD
Approved: Jun 30, 2006 | RLD: No | RS: No | Type: DISCN